FAERS Safety Report 15339949 (Version 5)
Quarter: 2020Q4

REPORT INFORMATION
  Report Type: Report from Study
  Country: US (occurrence: US)
  Receive Date: 20180831
  Receipt Date: 20201123
  Transmission Date: 20210113
  Serious: Yes (Other)
  Sender: FDA-Public Use
  Company Number: PHEH2018US035780

PATIENT
  Sex: Male

DRUGS (5)
  1. EVEROLIMUS. [Suspect]
     Active Substance: EVEROLIMUS
     Indication: ASTROCYTOMA, LOW GRADE
     Dosage: 15 MG, QD
     Route: 048
  2. AFINITOR [Suspect]
     Active Substance: EVEROLIMUS
     Dosage: 10 MG, QD
     Route: 048
  3. AFINITOR [Suspect]
     Active Substance: EVEROLIMUS
     Dosage: 10 MG, QD
     Route: 048
  4. AFINITOR [Suspect]
     Active Substance: EVEROLIMUS
     Dosage: 15 MG, QD
     Route: 048
  5. AFINITOR [Suspect]
     Active Substance: EVEROLIMUS
     Indication: ASTROCYTOMA, LOW GRADE
     Dosage: 7.5 MG, BID
     Route: 048

REACTIONS (14)
  - Lethargy [Unknown]
  - Salivary hypersecretion [Unknown]
  - Blood cholesterol increased [Unknown]
  - Epistaxis [Unknown]
  - Stomatitis [Unknown]
  - Astrocytoma, low grade [Unknown]
  - Malignant neoplasm progression [Unknown]
  - Drug level increased [Unknown]
  - Heart rate increased [Unknown]
  - Flatulence [Unknown]
  - Sleep deficit [Unknown]
  - Alopecia [Unknown]
  - Anxiety [Unknown]
  - Product dose omission issue [Unknown]
